FAERS Safety Report 7010613-9 (Version None)
Quarter: 2010Q3

REPORT INFORMATION
  Report Type: 
  Country: None (occurrence: None)
  Receive Date: 20100923
  Receipt Date: 20100919
  Transmission Date: 20110219
  Serious: Yes (Hospitalization)
  Sender: FDA-Public Use
  Company Number: US-AMGEN-KDL439517

PATIENT
  Sex: Female

DRUGS (1)
  1. ENBREL [Suspect]
     Indication: RHEUMATOID ARTHRITIS
     Route: 058
     Dates: start: 20040218, end: 20050901

REACTIONS (5)
  - ARTHROPATHY [None]
  - FALL [None]
  - HIP FRACTURE [None]
  - IMPAIRED HEALING [None]
  - RHEUMATOID ARTHRITIS [None]
